FAERS Safety Report 5346409-3 (Version None)
Quarter: 2007Q2

REPORT INFORMATION
  Report Type: 
  Country: None (occurrence: None)
  Receive Date: 20070605
  Receipt Date: 20070531
  Transmission Date: 20071010
  Serious: Yes (Hospitalization)
  Sender: FDA-Public Use
  Company Number: FR-SHR-FR-2007-019895

PATIENT
  Age: 66 Year
  Sex: Female

DRUGS (2)
  1. CLIMARA [Suspect]
     Dosage: 1 DF, 1X/WEEK
     Route: 062
     Dates: start: 20060515, end: 20061228
  2. ESTREVA [Concomitant]
     Dates: start: 19980101, end: 20060101

REACTIONS (2)
  - HYPERPLASTIC CHOLECYSTOPATHY [None]
  - PANCREATITIS RELAPSING [None]
